FAERS Safety Report 11897329 (Version 1)
Quarter: 2016Q1

REPORT INFORMATION
  Report Type: Spontaneous
  Country: US (occurrence: US)
  Receive Date: 20160108
  Receipt Date: 20160108
  Transmission Date: 20160526
  Serious: No
  Sender: FDA-Public Use
  Company Number: US-DRREDDYS-USA/USA/15/0053625

PATIENT
  Sex: Female

DRUGS (1)
  1. HABITROL [Suspect]
     Active Substance: NICOTINE
     Indication: PRODUCT USED FOR UNKNOWN INDICATION
     Route: 065
     Dates: start: 201505

REACTIONS (6)
  - Application site infection [Unknown]
  - Application site vesicles [Unknown]
  - Myalgia [Unknown]
  - Pain in extremity [Unknown]
  - Application site pruritus [Unknown]
  - Burning sensation [Unknown]
